FAERS Safety Report 9959397 (Version 1)
Quarter: 2014Q1

REPORT INFORMATION
  Report Type: Spontaneous
  Country: US (occurrence: None)
  Receive Date: 20140227
  Receipt Date: 20140227
  Transmission Date: 20141002
  Serious: Yes (Hospitalization)
  Sender: FDA-Public Use
  Company Number: UTC-045005

PATIENT
  Age: 85 Year
  Sex: Female

DRUGS (1)
  1. TYVASO (6 MICROGRAM, AEROSOL FOR INHALATION)(TREPROSTINIL SODIUM) [Suspect]
     Indication: PULMONARY ARTERIAL HYPERTENSION
     Dosage: 4 IN 1 D
     Route: 055
     Dates: start: 20140109

REACTIONS (1)
  - Intra-abdominal haemorrhage [None]
